FAERS Safety Report 8340022-1 (Version None)
Quarter: 2012Q2

REPORT INFORMATION
  Report Type: 
  Country: None (occurrence: None)
  Receive Date: 20120507
  Receipt Date: 20120503
  Transmission Date: 20120825
  Serious: Yes (Death)
  Sender: FDA-Public Use
  Company Number: US-PFIZER INC-2012109665

PATIENT

DRUGS (9)
  1. DIFLUCAN [Suspect]
  2. MEDROL [Suspect]
  3. LIPITOR [Suspect]
  4. ARTHROTEC [Suspect]
  5. GLUCOTROL [Suspect]
  6. DILANTIN [Suspect]
  7. NORVASC [Suspect]
  8. ZITHROMAX [Suspect]
  9. RELPAX [Suspect]

REACTIONS (1)
  - DEATH [None]
